FAERS Safety Report 17740223 (Version 6)
Quarter: 2020Q2

REPORT INFORMATION
  Report Type: Spontaneous
  Country: US (occurrence: US)
  Receive Date: 20200504
  Receipt Date: 20200604
  Transmission Date: 20200714
  Serious: No
  Sender: FDA-Public Use
  Company Number: US-PFIZER INC-2020174451

PATIENT
  Age: 68 Year
  Sex: Female
  Weight: 58.96 kg

DRUGS (5)
  1. XALKORI [Suspect]
     Active Substance: CRIZOTINIB
     Indication: GENE MUTATION
     Dosage: UNK
     Dates: start: 20200324
  2. VITAMIN D [COLECALCIFEROL] [Concomitant]
     Active Substance: CHOLECALCIFEROL
     Indication: VITAMIN D DECREASED
     Dosage: 1000 MG, DAILY
     Dates: start: 202002
  3. XALKORI [Suspect]
     Active Substance: CRIZOTINIB
     Dosage: 250 MG, 2X/DAY
     Route: 048
     Dates: start: 20200424, end: 20200513
  4. XALKORI [Suspect]
     Active Substance: CRIZOTINIB
     Dosage: 250 MG, DAILY
     Route: 048
  5. CALCIUM [Concomitant]
     Active Substance: CALCIUM
     Indication: METASTASES TO BONE
     Dosage: UNK UNK, DAILY (1500 DAILY)
     Dates: start: 202002

REACTIONS (4)
  - Alanine aminotransferase increased [Unknown]
  - Product use in unapproved indication [Unknown]
  - Aspartate aminotransferase increased [Unknown]
  - Off label use [Unknown]

NARRATIVE: CASE EVENT DATE: 20200324
